FAERS Safety Report 10338947 (Version 1)
Quarter: 2014Q3

REPORT INFORMATION
  Report Type: Spontaneous
  Country: US (occurrence: None)
  Receive Date: 20140723
  Receipt Date: 20140723
  Transmission Date: 20150326
  Serious: Yes (Hospitalization)
  Sender: FDA-Public Use
  Company Number: None

PATIENT
  Age: 70 Year
  Sex: Male
  Weight: 97 kg

DRUGS (1)
  1. DAPTOMYCIN [Suspect]
     Active Substance: DAPTOMYCIN
     Indication: WOUND INFECTION
     Route: 042
     Dates: start: 20140624, end: 20140715

REACTIONS (6)
  - Dyspnoea [None]
  - Fatigue [None]
  - Chills [None]
  - Pyrexia [None]
  - Eosinophilic pneumonia [None]
  - Lung infiltration [None]

NARRATIVE: CASE EVENT DATE: 20140714
